FAERS Safety Report 4496522-8 (Version None)
Quarter: 2004Q4

REPORT INFORMATION
  Report Type: 
  Country: None (occurrence: None)
  Receive Date: 20041109
  Receipt Date: 20041021
  Transmission Date: 20050328
  Serious: Yes (Hospitalization)
  Sender: FDA-Public Use
  Company Number: SE-JNJFOC-20041007104

PATIENT
  Age: 65 Year
  Sex: Female

DRUGS (15)
  1. REMICADE [Suspect]
     Indication: MUSCULOSKELETAL DISORDER
     Route: 042
  2. SENDOXAN [Suspect]
     Indication: MUSCULOSKELETAL DISORDER
     Dosage: A TOTAL OF SIX DOSES WERE GIVEN.
     Route: 042
  3. SENDOXAN [Suspect]
     Route: 049
  4. METHOTREXATE [Suspect]
     Indication: MUSCULOSKELETAL DISORDER
     Route: 065
  5. STILNOCT [Concomitant]
  6. LANSOPRAZOLE [Concomitant]
  7. ZOCORD [Concomitant]
  8. FOSAMAX [Concomitant]
  9. INOLAXOL [Concomitant]
  10. FOLACIN [Concomitant]
  11. FOLACIN [Concomitant]
  12. PREDNISOLONE [Concomitant]
  13. ESTRADERM [Concomitant]
  14. CALCICHEW-D3 [Concomitant]
  15. CALCICHEW-D3 [Concomitant]

REACTIONS (1)
  - ACUTE MYELOID LEUKAEMIA [None]
